FAERS Safety Report 4266979-6 (Version None)
Quarter: 2004Q1

REPORT INFORMATION
  Report Type: 
  Country: None (occurrence: None)
  Receive Date: 20040108
  Receipt Date: 20030506
  Transmission Date: 20041129
  Serious: No
  Sender: FDA-Public Use
  Company Number: US-BRISTOL-MYERS SQUIBB COMPANY-12267704

PATIENT
  Age: 33 Year
  Sex: Male
  Weight: 62 kg

DRUGS (4)
  1. NADOLOL [Suspect]
     Indication: PALPITATIONS
     Route: 048
  2. NADOLOL [Suspect]
     Indication: MITRAL VALVE PROLAPSE
     Route: 048
  3. MIRALAX [Concomitant]
  4. CITRUCEL [Concomitant]

REACTIONS (4)
  - ABDOMINAL DISTENSION [None]
  - CONSTIPATION [None]
  - DIARRHOEA [None]
  - FLATULENCE [None]
